FAERS Safety Report 5527934-9 (Version None)
Quarter: 2007Q4

REPORT INFORMATION
  Report Type: 
  Country: None (occurrence: None)
  Receive Date: 20071126
  Receipt Date: 20071126
  Transmission Date: 20080405
  Serious: Yes (Other)
  Sender: FDA-Public Use
  Company Number: None

PATIENT
  Age: 53 Year
  Sex: Female
  Weight: 72.5755 kg

DRUGS (1)
  1. BONIVA [Suspect]
     Indication: OSTEOPOROSIS
     Dosage: 1 PRE-FILLED EVERY 3 MONTHS IV
     Route: 042
     Dates: start: 20070301, end: 20071205

REACTIONS (8)
  - HYPOAESTHESIA [None]
  - INCORRECT ROUTE OF DRUG ADMINISTRATION [None]
  - INJECTION SITE PAIN [None]
  - INJECTION SITE SWELLING [None]
  - MUSCLE INJURY [None]
  - NERVE INJURY [None]
  - PARAESTHESIA [None]
  - SKIN DISCOLOURATION [None]
